FAERS Safety Report 5236408-4 (Version None)
Quarter: 2007Q1

REPORT INFORMATION
  Report Type: 
  Country: None (occurrence: None)
  Receive Date: 20070208
  Receipt Date: 20070130
  Transmission Date: 20070707
  Serious: Yes (Hospitalization)
  Sender: FDA-Public Use
  Company Number: 028-20785-06110983

PATIENT
  Age: 68 Year
  Sex: Male

DRUGS (14)
  1. THALOMID [Suspect]
     Indication: AMYLOIDOSIS
     Dosage: SEE IMAGE
     Route: 048
     Dates: start: 20041223, end: 20050101
  2. THALOMID [Suspect]
     Indication: MULTIPLE MYELOMA
     Dosage: SEE IMAGE
     Route: 048
     Dates: start: 20041223, end: 20050101
  3. THALOMID [Suspect]
     Indication: AMYLOIDOSIS
     Dosage: SEE IMAGE
     Route: 048
     Dates: start: 20050118, end: 20050314
  4. THALOMID [Suspect]
     Indication: MULTIPLE MYELOMA
     Dosage: SEE IMAGE
     Route: 048
     Dates: start: 20050118, end: 20050314
  5. THALOMID [Suspect]
     Indication: AMYLOIDOSIS
     Dosage: SEE IMAGE
     Route: 048
     Dates: start: 20041223
  6. THALOMID [Suspect]
     Indication: MULTIPLE MYELOMA
     Dosage: SEE IMAGE
     Route: 048
     Dates: start: 20041223
  7. DEXAMETHASONE TAB [Suspect]
     Indication: MULTIPLE MYELOMA
     Dates: start: 20041223
  8. LASIX [Concomitant]
  9. EPREX [Concomitant]
  10. AREDIA [Concomitant]
  11. NEXIUM [Concomitant]
  12. ALLOPURINOL [Concomitant]
  13. COUMADIN [Concomitant]
  14. ADALAT [Concomitant]

REACTIONS (8)
  - ANAEMIA [None]
  - ANOREXIA [None]
  - FATIGUE [None]
  - FLUID OVERLOAD [None]
  - FLUID RETENTION [None]
  - PARAESTHESIA [None]
  - PLATELET COUNT DECREASED [None]
  - WHITE BLOOD CELL COUNT DECREASED [None]
